FAERS Safety Report 18288411 (Version 1)
Quarter: 2020Q3

REPORT INFORMATION
  Report Type: Spontaneous
  Country: US (occurrence: US)
  Receive Date: 20200920
  Receipt Date: 20200920
  Transmission Date: 20201103
  Serious: Yes (Other)
  Sender: FDA-Public Use
  Company Number: None

PATIENT
  Age: 65 Year
  Sex: Male
  Weight: 75.3 kg

DRUGS (5)
  1. ADVANCED EYE RELIEF EYE WASH [Suspect]
     Active Substance: WATER
  2. DIM [Concomitant]
  3. TERASOZIN [Concomitant]
  4. PROSTATE SUPPORT [Concomitant]
  5. CALCIUM [Concomitant]
     Active Substance: CALCIUM

REACTIONS (2)
  - Injury associated with device [None]
  - Injury corneal [None]

NARRATIVE: CASE EVENT DATE: 20200821
